FAERS Safety Report 25890080 (Version 1)
Quarter: 2025Q4

REPORT INFORMATION
  Report Type: Spontaneous
  Country: EU (occurrence: EU)
  Receive Date: 20251007
  Receipt Date: 20251007
  Transmission Date: 20260118
  Serious: Yes (Life-Threatening, Hospitalization)
  Sender: RANBAXY
  Company Number: EU-AFSSAPS-MP2025000882

PATIENT
  Age: 57 Year
  Sex: Male
  Weight: 98 kg

DRUGS (9)
  1. RISPERIDONE [Interacting]
     Active Substance: RISPERIDONE
     Indication: Psychiatric decompensation
     Dosage: 4 MILLIGRAM, DAILY
     Route: 048
     Dates: start: 20250510, end: 20250523
  2. RISPERIDONE [Interacting]
     Active Substance: RISPERIDONE
     Dosage: 6 MILLIGRAM, DAILY
     Route: 048
     Dates: start: 20250523, end: 20250602
  3. RISPERIDONE [Interacting]
     Active Substance: RISPERIDONE
     Dosage: 4 MILLIGRAM, DAILY
     Route: 048
  4. PAROXETINE [Interacting]
     Active Substance: PAROXETINE
     Indication: Psychiatric decompensation
     Dosage: 20 MILLIGRAM, DAILY
     Route: 048
     Dates: start: 20250528
  5. LOXAPINE [Concomitant]
     Active Substance: LOXAPINE
     Indication: Psychiatric decompensation
     Dosage: 90 GTT DROPS, DAILY
     Route: 048
     Dates: start: 20250530, end: 20250601
  6. VALIUM [Concomitant]
     Active Substance: DIAZEPAM
     Indication: Psychiatric decompensation
     Dosage: 40 GTT DROPS, DAILY
     Route: 048
     Dates: start: 20250529, end: 20250602
  7. VALIUM [Concomitant]
     Active Substance: DIAZEPAM
     Route: 048
     Dates: start: 20250602, end: 20250603
  8. VALIUM [Concomitant]
     Active Substance: DIAZEPAM
     Route: 048
     Dates: start: 20250604, end: 20250604
  9. PYRIDOSTIGMINE [Concomitant]
     Active Substance: PYRIDOSTIGMINE
     Indication: Product used for unknown indication
     Dosage: 60 MILLIGRAM, DAILY
     Route: 048
     Dates: start: 20250530, end: 20250605

REACTIONS (3)
  - Acute myocardial infarction [Recovered/Resolved]
  - Drug interaction [Not Recovered/Not Resolved]
  - Potentiating drug interaction [Not Recovered/Not Resolved]

NARRATIVE: CASE EVENT DATE: 20250528
